FAERS Safety Report 23173002 (Version 2)
Quarter: 2023Q4

REPORT INFORMATION
  Report Type: Report from Study
  Country: None (occurrence: US)
  Receive Date: 20231110
  Receipt Date: 20231214
  Transmission Date: 20240109
  Serious: Yes (Other)
  Sender: FDA-Public Use
  Company Number: US-Amphastar Pharmaceuticals, Inc.-2148093

PATIENT
  Age: 54 Year
  Sex: Male

DRUGS (2)
  1. BAQSIMI [Suspect]
     Active Substance: GLUCAGON
     Route: 045
  2. HUMALOG [Suspect]
     Active Substance: INSULIN LISPRO
     Route: 065

REACTIONS (2)
  - Accident [Unknown]
  - Lower limb fracture [Unknown]
